FAERS Safety Report 23378512 (Version 1)
Quarter: 2024Q1

REPORT INFORMATION
  Report Type: Spontaneous
  Country: CN (occurrence: CN)
  Receive Date: 20240108
  Receipt Date: 20240108
  Transmission Date: 20240409
  Serious: Yes (Other)
  Sender: FDA-Public Use
  Company Number: CN-MLMSERVICE-20231220-4733824-1

PATIENT
  Age: 61 Year
  Sex: Female

DRUGS (2)
  1. PACLITAXEL [Suspect]
     Active Substance: PACLITAXEL
     Indication: Ovarian cancer
     Dosage: THREE COURSES
     Dates: start: 201504, end: 2015
  2. PLATINUM [Concomitant]
     Active Substance: PLATINUM
     Dosage: UNK
     Dates: start: 201504, end: 2015

REACTIONS (2)
  - Intestinal obstruction [Unknown]
  - Myelosuppression [Unknown]

NARRATIVE: CASE EVENT DATE: 20150101
